FAERS Safety Report 14562359 (Version 2)
Quarter: 2018Q1

REPORT INFORMATION
  Report Type: Other
  Country: ES (occurrence: ES)
  Receive Date: 20180222
  Receipt Date: 20180326
  Transmission Date: 20180509
  Serious: Yes (Other)
  Sender: FDA-Public Use
  Company Number: ES-VELOXIS PHARMACEUTICALS-2042445

PATIENT
  Age: 63 Year
  Sex: Male

DRUGS (1)
  1. ENVARSUS XR [Suspect]
     Active Substance: TACROLIMUS
     Indication: PROPHYLAXIS AGAINST GRAFT VERSUS HOST DISEASE
     Route: 065

REACTIONS (5)
  - Graft versus host disease in lung [Unknown]
  - Chronic graft versus host disease [Unknown]
  - Chronic graft versus host disease in intestine [Unknown]
  - Chronic graft versus host disease in skin [Unknown]
  - Intentional product use issue [Unknown]
